FAERS Safety Report 5925484-9 (Version None)
Quarter: 2008Q4

REPORT INFORMATION
  Report Type: 
  Country: None (occurrence: None)
  Receive Date: 20081016
  Receipt Date: 20081003
  Transmission Date: 20090506
  Serious: Yes (Life-Threatening)
  Sender: FDA-Public Use
  Company Number: WAES 0802USA06207

PATIENT
  Age: 51 Year
  Sex: Female

DRUGS (16)
  1. PRIMAXIN [Suspect]
     Dosage: 3 DOSE, DAILY; IV
     Route: 042
  2. AMBISOME [Suspect]
     Indication: MUCORMYCOSIS
     Dosage: SEE IMAGE
     Route: 042
     Dates: start: 20070831, end: 20070904
  3. AMBISOME [Suspect]
     Indication: MUCORMYCOSIS
     Dosage: SEE IMAGE
     Route: 042
     Dates: start: 20070907, end: 20070911
  4. AMBISOME [Suspect]
     Indication: MUCORMYCOSIS
     Dosage: SEE IMAGE
     Route: 042
     Dates: start: 20070912, end: 20070913
  5. AMBISOME [Suspect]
     Indication: MUCORMYCOSIS
     Dosage: SEE IMAGE
     Route: 042
     Dates: start: 20070917, end: 20070918
  6. AMBISOME [Suspect]
     Indication: MUCORMYCOSIS
     Dosage: SEE IMAGE
     Route: 042
     Dates: start: 20070919, end: 20070922
  7. AMBISOME [Suspect]
     Indication: MUCORMYCOSIS
     Dosage: SEE IMAGE
     Route: 042
     Dates: start: 20070925
  8. COVERSYL (PERINDOPRIL ARGININE) (PERINDOPRIL) [Suspect]
     Dosage: 3 MG/PO
     Route: 048
     Dates: start: 20070921, end: 20070923
  9. ACTRAPID (INSULIN, NEUTRAL) [Suspect]
     Indication: DIABETES MELLITUS
     Dosage: SC
     Route: 058
     Dates: start: 20070905
  10. LANTUS [Suspect]
     Indication: PROPHYLAXIS
     Dosage: 1 DOSE, DAILY; SC
     Route: 058
  11. CALCIPARINE [Suspect]
     Indication: PROPHYLAXIS
     Dosage: 2 DOSE, DAILY; SC
     Route: 058
  12. MOPRAL (OMEPRAZOLE) (OMEPRAZOLE) [Suspect]
     Dosage: 1 DOSE, DAILY, IV
     Route: 042
     Dates: start: 20071010
  13. PERIKABIVEN (AMINO ACIDS (UNSPECIFIED) (+)DEX [Suspect]
     Indication: PARENTERAL NUTRITION
     Dates: start: 20071010
  14. EUPRESSYL [Concomitant]
  15. LOXEN [Concomitant]
  16. SECTRAL [Concomitant]

REACTIONS (11)
  - CARDIO-RESPIRATORY ARREST [None]
  - CEREBRAL FUNGAL INFECTION [None]
  - DYSPHAGIA [None]
  - ESCHERICHIA INFECTION [None]
  - FACIAL PALSY [None]
  - HYPOACUSIS [None]
  - LUNG DISORDER [None]
  - PSEUDOMONAS INFECTION [None]
  - RENAL FAILURE ACUTE [None]
  - SEPSIS [None]
  - STAPHYLOCOCCAL INFECTION [None]
